FAERS Safety Report 14034025 (Version 1)
Quarter: 2017Q4

REPORT INFORMATION
  Report Type: Spontaneous
  Country: US (occurrence: None)
  Receive Date: 20171003
  Receipt Date: 20171003
  Transmission Date: 20180321
  Serious: Yes (Hospitalization)
  Sender: FDA-Public Use
  Company Number: None

PATIENT
  Age: 62 Year
  Sex: Female

DRUGS (15)
  1. CYCLOBENZAPR [Concomitant]
     Active Substance: CYCLOBENZAPRINE
  2. METHYLPRED [Concomitant]
     Active Substance: METHYLPREDNISOLONE
  3. VALSART/HCTZ TAB [Concomitant]
     Active Substance: HYDROCHLOROTHIAZIDE\VALSARTAN
  4. MEKINIST [Suspect]
     Active Substance: TRAMETINIB DIMETHYL SULFOXIDE
     Indication: MALIGNANT MELANOMA
     Route: 048
     Dates: start: 20170331
  5. TAFINLAR [Suspect]
     Active Substance: DABRAFENIB MESYLATE
     Indication: MALIGNANT MELANOMA
     Route: 048
     Dates: start: 20170331
  6. DOXYCYC MONO [Concomitant]
     Active Substance: DOXYCYCLINE
  7. GABAPENTIN. [Concomitant]
     Active Substance: GABAPENTIN
  8. IMODIUM ADV [Concomitant]
  9. OMEPRAZOLE. [Concomitant]
     Active Substance: OMEPRAZOLE
  10. LASIX [Concomitant]
     Active Substance: FUROSEMIDE
  11. MOTRIN IB [Concomitant]
     Active Substance: IBUPROFEN
  12. MUPIROCIN. [Concomitant]
     Active Substance: MUPIROCIN
  13. SSD [Concomitant]
     Active Substance: SILVER SULFADIAZINE
  14. FERROUS SULF [Concomitant]
     Active Substance: FERROUS SULFATE
  15. FUROSEMIDE. [Concomitant]
     Active Substance: FUROSEMIDE

REACTIONS (1)
  - Drug dose omission [None]

NARRATIVE: CASE EVENT DATE: 2017
